FAERS Safety Report 24910020 (Version 2)
Quarter: 2025Q1

REPORT INFORMATION
  Report Type: Report from Study
  Country: CO (occurrence: CO)
  Receive Date: 20250131
  Receipt Date: 20250218
  Transmission Date: 20250409
  Serious: Yes (Death)
  Sender: BAYER HEALTHCARE PHARMACEUTICALS INC.
  Company Number: CO-BAYER-2025A014244

PATIENT
  Age: 74 Year
  Sex: Female

DRUGS (2)
  1. ADEMPAS [Suspect]
     Active Substance: RIOCIGUAT
     Indication: Pulmonary arterial hypertension
     Route: 048
     Dates: start: 202407, end: 202411
  2. ADEMPAS [Suspect]
     Active Substance: RIOCIGUAT
     Indication: Thrombosis

REACTIONS (3)
  - Cerebrovascular accident [Fatal]
  - Product supply issue [None]
  - Therapy interrupted [None]

NARRATIVE: CASE EVENT DATE: 20241201
